FAERS Safety Report 5027302-2 (Version None)
Quarter: 2006Q2

REPORT INFORMATION
  Report Type: 
  Country: None (occurrence: None)
  Receive Date: 20060501
  Receipt Date: 20060212
  Transmission Date: 20061013
  Serious: No
  Sender: FDA-Public Use
  Company Number: 2006PV008549

PATIENT
  Age: 58 Year
  Sex: Female
  Weight: 82.5547 kg

DRUGS (8)
  1. SYMLIN INJECTION (0.6 MG/ML) [Suspect]
     Indication: DIABETES MELLITUS NON-INSULIN-DEPENDENT
     Dosage: 60 MCG; TID; SC
     Route: 058
     Dates: start: 20060209
  2. NOVOLOG [Concomitant]
  3. LANTUS [Concomitant]
  4. GLIPIZIDE [Concomitant]
  5. LEVOXYL [Concomitant]
  6. ASPIRIN [Concomitant]
  7. DIOVAN HCT [Concomitant]
  8. DIOVAN [Concomitant]

REACTIONS (7)
  - BACK PAIN [None]
  - BLOOD GLUCOSE INCREASED [None]
  - CHILLS [None]
  - DIARRHOEA [None]
  - FATIGUE [None]
  - PYREXIA [None]
  - VOMITING [None]
